FAERS Safety Report 12919975 (Version 1)
Quarter: 2016Q4

REPORT INFORMATION
  Report Type: Spontaneous
  Country: US (occurrence: US)
  Receive Date: 20161108
  Receipt Date: 20161108
  Transmission Date: 20170207
  Serious: Yes (Hospitalization, Other)
  Sender: FDA-Public Use
  Company Number: None

PATIENT
  Age: 30 Year
  Sex: Female
  Weight: 49.9 kg

DRUGS (1)
  1. NEXPLANON [Suspect]
     Active Substance: ETONOGESTREL
     Indication: CONTRACEPTION
     Dates: start: 20150310, end: 20160210

REACTIONS (8)
  - Stress [None]
  - Personality change [None]
  - Loss of employment [None]
  - Chest pain [None]
  - Abdominal pain [None]
  - Weight decreased [None]
  - Dysarthria [None]
  - Seizure [None]

NARRATIVE: CASE EVENT DATE: 20150310
